FAERS Safety Report 17478536 (Version 1)
Quarter: 2020Q1

REPORT INFORMATION
  Report Type: Spontaneous
  Country: CN (occurrence: CN)
  Receive Date: 20200228
  Receipt Date: 20200228
  Transmission Date: 20200409
  Serious: Yes (Other)
  Sender: FDA-Public Use
  Company Number: CN-PFIZER INC-2020083735

PATIENT
  Age: 63 Year
  Sex: Male

DRUGS (4)
  1. TYGACIL [Suspect]
     Active Substance: TIGECYCLINE
     Indication: INTRACRANIAL INFECTION
     Dosage: 5 MG, 1X/DAY
     Route: 037
  2. SULPERAZON [Suspect]
     Active Substance: CEFOPERAZONE SODIUM\SULBACTAM SODIUM
     Indication: INTRACRANIAL INFECTION
     Dosage: 3 G, 3X/DAY
     Route: 041
  3. SULPERAZON [Suspect]
     Active Substance: CEFOPERAZONE SODIUM\SULBACTAM SODIUM
     Indication: ACINETOBACTER INFECTION
  4. TYGACIL [Suspect]
     Active Substance: TIGECYCLINE
     Indication: ACINETOBACTER INFECTION
     Dosage: 5 MG, 2X/DAY
     Route: 037

REACTIONS (1)
  - Epilepsy [Unknown]
